FAERS Safety Report 16204659 (Version 1)
Quarter: 2019Q2

REPORT INFORMATION
  Report Type: Spontaneous
  Country: US (occurrence: US)
  Receive Date: 20190416
  Receipt Date: 20190416
  Transmission Date: 20190711
  Serious: No
  Sender: FDA-Public Use
  Company Number: US-BAUSCH-BL-2019-009915

PATIENT
  Age: 60 Year
  Sex: Female
  Weight: 113.5 kg

DRUGS (1)
  1. LUMIFY [Suspect]
     Active Substance: BRIMONIDINE TARTRATE
     Indication: OCULAR HYPERAEMIA
     Dosage: 3 DROPS IN EACH EYE
     Route: 047
     Dates: start: 20190329, end: 20190329

REACTIONS (3)
  - Head discomfort [Recovering/Resolving]
  - Headache [Recovering/Resolving]
  - Ocular discomfort [Recovering/Resolving]

NARRATIVE: CASE EVENT DATE: 20190329
